FAERS Safety Report 17511306 (Version 2)
Quarter: 2020Q2

REPORT INFORMATION
  Report Type: Report from Study
  Country: DE (occurrence: DE)
  Receive Date: 20200306
  Receipt Date: 20200514
  Transmission Date: 20200713
  Serious: Yes (Hospitalization)
  Sender: FDA-Public Use
  Company Number: DE-CELGENEUS-DEU-20200301128

PATIENT
  Age: 69 Year
  Sex: Female
  Weight: 80.5 kg

DRUGS (9)
  1. POMALIDOMIDE [Suspect]
     Active Substance: POMALIDOMIDE
     Indication: MYELOFIBROSIS
     Route: 048
     Dates: start: 20180315, end: 20180605
  2. EXJEOLE [Concomitant]
     Indication: PROPHYLAXIS
     Dosage: 720 MILLIGRAM
     Route: 065
     Dates: end: 20200302
  3. ELIQUIS [Concomitant]
     Active Substance: APIXABAN
     Indication: ANTICOAGULANT THERAPY
     Dosage: 10 MILLIGRAM
     Route: 065
     Dates: end: 20200302
  4. POMALIDOMIDE [Suspect]
     Active Substance: POMALIDOMIDE
     Route: 048
     Dates: start: 20180606, end: 20180828
  5. BISOHEXAL [Concomitant]
     Active Substance: BISOPROLOL FUMARATE
     Indication: HYPERTENSION
     Dosage: 10 MILLIGRAM
     Route: 065
     Dates: end: 20200302
  6. MYLEMINUM [Concomitant]
     Indication: EPILEPSY
     Dosage: 250 MILLIGRAM
     Route: 065
     Dates: end: 20200302
  7. POMALIDOMIDE [Suspect]
     Active Substance: POMALIDOMIDE
     Route: 048
     Dates: start: 20180829, end: 20200302
  8. ASA [Concomitant]
     Active Substance: ASPIRIN
     Indication: ANTICOAGULANT THERAPY
     Dosage: 100 MILLIGRAM
     Route: 065
  9. INC424 [Suspect]
     Active Substance: RUXOLITINIB
     Indication: MYELOFIBROSIS
     Route: 048
     Dates: start: 20180315

REACTIONS (1)
  - Pulmonary embolism [Recovering/Resolving]

NARRATIVE: CASE EVENT DATE: 20200302
